FAERS Safety Report 21772635 (Version 1)
Quarter: 2022Q4

REPORT INFORMATION
  Report Type: Spontaneous
  Country: US (occurrence: US)
  Receive Date: 20221223
  Receipt Date: 20221223
  Transmission Date: 20230113
  Serious: Yes (Other)
  Sender: FDA-Public Use
  Company Number: US-JAZZ-2022-US-038187

PATIENT
  Age: 50 Year
  Sex: Male

DRUGS (1)
  1. XYREM [Suspect]
     Active Substance: SODIUM OXYBATE
     Indication: Product used for unknown indication
     Dosage: UNK
     Dates: start: 20221109

REACTIONS (2)
  - Depressed level of consciousness [Recovered/Resolved]
  - Extra dose administered [Unknown]
